FAERS Safety Report 19510416 (Version 1)
Quarter: 2021Q3

REPORT INFORMATION
  Report Type: Other
  Country: CA (occurrence: CA)
  Receive Date: 20210709
  Receipt Date: 20210709
  Transmission Date: 20211014
  Serious: Yes (Other)
  Sender: FDA-Public Use
  Company Number: CA-APOTEX-2021AP015253

PATIENT
  Age: 68 Year
  Sex: Male

DRUGS (8)
  1. DEFERASIROX. [Suspect]
     Active Substance: DEFERASIROX
     Indication: ANAEMIA
     Dosage: 900 MILLIGRAM, QD
     Route: 048
  2. RIBOFLAVIN 5^?PHOSPHATE. [Concomitant]
     Active Substance: RIBOFLAVIN 5^-PHOSPHATE
     Indication: PRODUCT USED FOR UNKNOWN INDICATION
     Dosage: UNK, QD
     Route: 065
  3. TYLENOL [Concomitant]
     Active Substance: ACETAMINOPHEN
     Indication: PRODUCT USED FOR UNKNOWN INDICATION
     Dosage: UNK
     Route: 065
  4. DEFERASIROX. [Suspect]
     Active Substance: DEFERASIROX
     Dosage: 360 MILLIGRAM, QD
     Route: 048
  5. AMLODIPINE [Suspect]
     Active Substance: AMLODIPINE BESYLATE
     Indication: PRODUCT USED FOR UNKNOWN INDICATION
     Dosage: UNK
     Route: 048
  6. DEFERASIROX. [Suspect]
     Active Substance: DEFERASIROX
     Dosage: 720 MILLIGRAM, QD
     Route: 048
  7. DEFERASIROX. [Suspect]
     Active Substance: DEFERASIROX
     Indication: IRON OVERLOAD
     Dosage: 1080 MILLIGRAM, QD
     Route: 048
  8. DEFERASIROX. [Suspect]
     Active Substance: DEFERASIROX
     Dosage: 1260 MILLIGRAM, QD
     Route: 048

REACTIONS (10)
  - Hypersensitivity [Not Recovered/Not Resolved]
  - Haemoglobin decreased [Not Recovered/Not Resolved]
  - Paraesthesia [Not Recovered/Not Resolved]
  - Therapeutic product effect incomplete [Not Recovered/Not Resolved]
  - Abdominal pain upper [Not Recovered/Not Resolved]
  - Vomiting [Not Recovered/Not Resolved]
  - Dyspepsia [Not Recovered/Not Resolved]
  - Red blood cell count decreased [Not Recovered/Not Resolved]
  - Diarrhoea [Not Recovered/Not Resolved]
  - Hypoaesthesia [Not Recovered/Not Resolved]
